FAERS Safety Report 7973066-X (Version None)
Quarter: 2011Q4

REPORT INFORMATION
  Report Type: 
  Country: None (occurrence: None)
  Receive Date: 20111213
  Receipt Date: 20111208
  Transmission Date: 20120403
  Serious: Yes (Death)
  Sender: FDA-Public Use
  Company Number: JP-BAYER-2011-029834

PATIENT
  Age: 3 Year
  Sex: Female
  Weight: 14 kg

DRUGS (10)
  1. NEXAVAR [Suspect]
     Dosage: 240 MG/M2, QD
     Route: 048
     Dates: start: 20110328
  2. PREDNISOLONE [Concomitant]
     Dosage: UNK
     Route: 065
     Dates: start: 20110215
  3. VINCRISTINE SULFATE [Concomitant]
     Dosage: UNK
     Route: 042
     Dates: start: 20110215
  4. NEXAVAR [Suspect]
     Dosage: 80 MG/M2, QD
     Route: 048
  5. PREDNISOLONE [Concomitant]
     Dosage: UNK
     Route: 065
     Dates: start: 20110117
  6. CYCLOSPORINE [Concomitant]
     Indication: ACUTE MYELOID LEUKAEMIA
     Dosage: UNK
     Route: 065
     Dates: start: 20110117
  7. VINCRISTINE SULFATE [Concomitant]
     Indication: ACUTE MYELOID LEUKAEMIA
     Dosage: UNK
     Route: 042
     Dates: start: 20110117
  8. MYLOTARG [Concomitant]
     Indication: ACUTE MYELOID LEUKAEMIA
     Dosage: UNK
     Route: 042
     Dates: start: 20110204
  9. NEXAVAR [Suspect]
     Indication: ACUTE MYELOID LEUKAEMIA
     Dosage: DAILY DOSE 180 MG/M2
     Route: 048
     Dates: start: 20110316
  10. PREDNISOLONE [Concomitant]
     Indication: ACUTE MYELOID LEUKAEMIA
     Dosage: UNK
     Route: 065
     Dates: start: 20110114

REACTIONS (3)
  - BLOOD CHOLESTEROL INCREASED [None]
  - ALOPECIA [None]
  - ACUTE MYELOID LEUKAEMIA [None]
